FAERS Safety Report 15019678 (Version 6)
Quarter: 2018Q3

REPORT INFORMATION
  Report Type: Spontaneous
  Country: US (occurrence: US)
  Receive Date: 20180618
  Receipt Date: 20180806
  Transmission Date: 20181010
  Serious: Yes (Hospitalization, Other)
  Sender: FDA-Public Use
  Company Number: PHEH2018US022896

PATIENT
  Age: 69 Year
  Sex: Male

DRUGS (11)
  1. LENVIMA [Suspect]
     Active Substance: LENVATINIB
     Indication: RENAL CANCER
     Dosage: 18 MG, QD
     Route: 048
     Dates: start: 20180503, end: 201805
  2. ENALAPRIL [Suspect]
     Active Substance: ENALAPRIL
     Dosage: UNK, BID
     Route: 048
     Dates: start: 201805
  3. AFINITOR [Suspect]
     Active Substance: EVEROLIMUS
     Dosage: 5 MG, QD
     Route: 048
  4. ENALAPRIL [Suspect]
     Active Substance: ENALAPRIL
     Indication: BLOOD PRESSURE INCREASED
     Dosage: UNK UNK, QD
     Route: 048
     Dates: start: 201805, end: 201805
  5. LENVIMA [Suspect]
     Active Substance: LENVATINIB
     Dosage: 18 MG, QD
     Route: 048
     Dates: start: 20180510, end: 201805
  6. AFINITOR [Suspect]
     Active Substance: EVEROLIMUS
     Indication: RENAL CANCER
     Dosage: 5 MG, QD
     Route: 048
     Dates: start: 20180503, end: 201805
  7. LENVIMA [Suspect]
     Active Substance: LENVATINIB
     Dosage: 18 MG, QD (ONCE DAILY)
     Route: 048
  8. KEPPRA [Concomitant]
     Active Substance: LEVETIRACETAM
     Indication: PRODUCT USED FOR UNKNOWN INDICATION
     Route: 065
  9. AFINITOR [Suspect]
     Active Substance: EVEROLIMUS
     Dosage: 5 MG, QD
     Route: 048
     Dates: start: 2018, end: 201806
  10. LENVIMA [Suspect]
     Active Substance: LENVATINIB
     Dosage: 18 MG, QD
     Route: 048
     Dates: start: 2018, end: 201806
  11. AFINITOR [Suspect]
     Active Substance: EVEROLIMUS
     Dosage: 5 MG, QD
     Route: 048
     Dates: start: 20180510, end: 201805

REACTIONS (10)
  - Blood pressure increased [Unknown]
  - Liver function test increased [Unknown]
  - Fatigue [Unknown]
  - Swelling [Unknown]
  - Dehydration [Recovered/Resolved]
  - Compression fracture [Unknown]
  - Back pain [Unknown]
  - Blood creatinine increased [Recovering/Resolving]
  - Asthenia [Recovered/Resolved]
  - Intestinal obstruction [Unknown]

NARRATIVE: CASE EVENT DATE: 201805
